FAERS Safety Report 8456519-X (Version None)
Quarter: 2012Q2

REPORT INFORMATION
  Report Type: 
  Country: None (occurrence: None)
  Receive Date: 20120621
  Receipt Date: 20120611
  Transmission Date: 20120825
  Serious: No
  Sender: FDA-Public Use
  Company Number: US-ASTRAZENECA-2011SE35850

PATIENT
  Age: 29 Year
  Sex: Female

DRUGS (3)
  1. SEROQUEL [Suspect]
     Indication: BIPOLAR DISORDER
     Route: 048
  2. PRILOSEC [Suspect]
     Route: 048
  3. NEXIUM [Concomitant]

REACTIONS (9)
  - MOTION SICKNESS [None]
  - DYSPEPSIA [None]
  - SLEEP DISORDER DUE TO GENERAL MEDICAL CONDITION, INSOMNIA TYPE [None]
  - DRUG DOSE OMISSION [None]
  - DRUG INEFFECTIVE [None]
  - GASTRIC DISORDER [None]
  - NAUSEA [None]
  - ABDOMINAL DISTENSION [None]
  - VOMITING [None]
